FAERS Safety Report 18688101 (Version 1)
Quarter: 2020Q4

REPORT INFORMATION
  Report Type: Report from Study
  Country: FR (occurrence: FR)
  Receive Date: 20201231
  Receipt Date: 20201231
  Transmission Date: 20210114
  Serious: Yes (Life-Threatening, Other)
  Sender: FDA-Public Use
  Company Number: FR-UCBSA-2020054733

PATIENT

DRUGS (1)
  1. CERTOLIZUMAB PEGOL [Suspect]
     Active Substance: CERTOLIZUMAB PEGOL
     Indication: METASTATIC MALIGNANT MELANOMA
     Dosage: 400 MILLIGRAM EVERY 3 WEEKS FOR 3 DOSES
     Route: 058

REACTIONS (8)
  - Haemophagocytic lymphohistiocytosis [Unknown]
  - Gastrointestinal disorder [Unknown]
  - Hepatobiliary disease [Unknown]
  - Hepatocellular injury [Unknown]
  - Hepatic enzyme abnormal [Unknown]
  - Malignant melanoma [Unknown]
  - Skin disorder [Unknown]
  - Metabolic disorder [Unknown]
